FAERS Safety Report 4382004-0 (Version None)
Quarter: 2004Q2

REPORT INFORMATION
  Report Type: 
  Country: None (occurrence: None)
  Receive Date: 20040615
  Receipt Date: 20040603
  Transmission Date: 20050107
  Serious: Yes (Death, Hospitalization)
  Sender: FDA-Public Use
  Company Number: ERD2004A00012

PATIENT
  Age: 77 Year
  Sex: Male

DRUGS (3)
  1. LEUPROLIDE ACETATE [Suspect]
     Indication: PROSTATE CANCER
     Dosage: 11.25 MG (11.25 MG,1 IN 3 M), SUBCUTANEOUS
     Route: 058
     Dates: start: 20030724, end: 20030724
  2. LEUPROLIDE ACETATE [Suspect]
     Indication: PROSTATE CANCER
     Dosage: 11.25 MG (11.25 MG,1 IN 3 M), SUBCUTANEOUS
     Route: 058
     Dates: start: 20031023, end: 20031023
  3. LEUPROLIDE ACETATE [Suspect]
     Indication: PROSTATE CANCER
     Dosage: 11.25 MG (11.25 MG,1 IN 3 M), SUBCUTANEOUS
     Route: 058
     Dates: start: 20040123, end: 20040123

REACTIONS (12)
  - ATRIAL FIBRILLATION [None]
  - ATRIOVENTRICULAR BLOCK FIRST DEGREE [None]
  - BLOOD PRESSURE INCREASED [None]
  - BRONCHOPNEUMONIA [None]
  - CARDIAC FAILURE [None]
  - CHOLELITHIASIS [None]
  - HYPOTENSION [None]
  - RESPIRATORY FAILURE [None]
  - SUBENDOCARDIAL ISCHAEMIA [None]
  - SUPRAVENTRICULAR EXTRASYSTOLES [None]
  - TACHYCARDIA [None]
  - VENTRICULAR EXTRASYSTOLES [None]
